FAERS Safety Report 21282707 (Version 2)
Quarter: 2022Q3

REPORT INFORMATION
  Report Type: Report from Study
  Country: US (occurrence: US)
  Receive Date: 20220901
  Receipt Date: 20220906
  Transmission Date: 20221027
  Serious: Yes (Hospitalization)
  Sender: FDA-Public Use
  Company Number: US-NOVARTISPH-NVSC2022US187947

PATIENT
  Age: 43 Year
  Sex: Male
  Weight: 75.8 kg

DRUGS (10)
  1. PLACEBO [Suspect]
     Active Substance: UNSPECIFIED INGREDIENT
     Indication: Cardiovascular disorder
     Dosage: UNK
     Route: 058
     Dates: start: 20220427
  2. PRASUGREL [Concomitant]
     Active Substance: PRASUGREL
     Indication: Percutaneous coronary intervention
     Dosage: UNK
     Route: 065
     Dates: start: 202108
  3. PRASUGREL [Concomitant]
     Active Substance: PRASUGREL
     Indication: Stent placement
  4. METOPROLOL [Concomitant]
     Active Substance: METOPROLOL
     Indication: Percutaneous coronary intervention
     Dosage: UNK
     Route: 065
     Dates: start: 20210813
  5. METOPROLOL [Concomitant]
     Active Substance: METOPROLOL
     Indication: Stent placement
  6. JARDIANCE [Concomitant]
     Active Substance: EMPAGLIFLOZIN
     Indication: Diabetes mellitus
     Dosage: UNK
     Route: 065
     Dates: start: 20210903
  7. ASPIRIN [Concomitant]
     Active Substance: ASPIRIN
     Indication: Percutaneous coronary intervention
     Dosage: UNK
     Route: 065
     Dates: start: 20210813
  8. ASPIRIN [Concomitant]
     Active Substance: ASPIRIN
     Indication: Stent placement
  9. CRESTOR [Concomitant]
     Active Substance: ROSUVASTATIN CALCIUM
     Indication: Hyperlipidaemia
     Dosage: UNK
     Route: 065
     Dates: start: 20220315
  10. ZETIA [Concomitant]
     Active Substance: EZETIMIBE
     Indication: Hyperlipidaemia
     Dosage: UNK
     Route: 065
     Dates: start: 20220302

REACTIONS (1)
  - Optic neuritis [Unknown]

NARRATIVE: CASE EVENT DATE: 20220818
